FAERS Safety Report 6719435-7 (Version None)
Quarter: 2010Q2

REPORT INFORMATION
  Report Type: 
  Country: None (occurrence: None)
  Receive Date: 20100510
  Receipt Date: 20100510
  Transmission Date: 20101027
  Serious: Yes (Hospitalization)
  Sender: FDA-Public Use
  Company Number: None

PATIENT
  Age: 74 Year
  Sex: Male
  Weight: 88.5 kg

DRUGS (2)
  1. FENOFIBRATE [Suspect]
     Indication: HYPERLIPIDAEMIA
     Dosage: 48 MG EVERY DAY PO
     Route: 048
     Dates: start: 20090330, end: 20091106
  2. PRAVASTATIN [Suspect]
     Indication: HYPERLIPIDAEMIA
     Dosage: 40 MG HS PO
     Route: 048
     Dates: start: 20081001, end: 20091106

REACTIONS (1)
  - RHABDOMYOLYSIS [None]
